FAERS Safety Report 7402278-9 (Version None)
Quarter: 2011Q1

REPORT INFORMATION
  Report Type: 
  Country: None (occurrence: None)
  Receive Date: 20110330
  Receipt Date: 20110314
  Transmission Date: 20110831
  Serious: Yes (Other)
  Sender: FDA-Public Use
  Company Number: 014903

PATIENT
  Sex: Male

DRUGS (2)
  1. GATIFLOXACIN [Concomitant]
  2. MACUGEN [Suspect]

REACTIONS (4)
  - OCULAR HYPERAEMIA [None]
  - EYE PAIN [None]
  - EYE DISCHARGE [None]
  - EYE OEDEMA [None]
